FAERS Safety Report 9146507 (Version 1)
Quarter: 2013Q1

REPORT INFORMATION
  Report Type: Spontaneous
  Country: US (occurrence: US)
  Receive Date: 20130307
  Receipt Date: 20130307
  Transmission Date: 20140127
  Serious: No
  Sender: FDA-Public Use
  Company Number: US-GLAXOSMITHKLINE-A0982888A

PATIENT
  Age: 75 Year
  Sex: Male
  Weight: 104.1 kg

DRUGS (4)
  1. ROPINIROLE [Suspect]
     Indication: PARKINSON^S DISEASE
     Dosage: 4MG THREE TIMES PER DAY
     Route: 048
     Dates: start: 201008
  2. CARBIDOPA + LEVODOPA [Concomitant]
  3. CARISOPRODOL [Concomitant]
  4. SIMVASTATIN [Concomitant]

REACTIONS (2)
  - Drug ineffective [Recovered/Resolved]
  - Tremor [Unknown]
